FAERS Safety Report 20019089 (Version 2)
Quarter: 2021Q4

REPORT INFORMATION
  Report Type: Spontaneous
  Country: JP (occurrence: JP)
  Receive Date: 20211101
  Receipt Date: 20211116
  Transmission Date: 20220304
  Serious: Yes (Hospitalization)
  Sender: FDA-Public Use
  Company Number: JP-EAGLE PHARMACEUTICALS, INC.-JP-2021EAG000237

PATIENT
  Age: 79 Year

DRUGS (6)
  1. BENDAMUSTINE HYDROCHLORIDE [Suspect]
     Active Substance: BENDAMUSTINE HYDROCHLORIDE
     Indication: Diffuse large B-cell lymphoma refractory
     Dosage: 70 MG/M2, (CYCLE 1)
     Route: 041
  2. BENDAMUSTINE HYDROCHLORIDE [Suspect]
     Active Substance: BENDAMUSTINE HYDROCHLORIDE
     Dosage: 70 MG/M2, (CYCLE 2)
     Route: 041
  3. RITUXAN [Concomitant]
     Active Substance: RITUXIMAB
     Indication: Diffuse large B-cell lymphoma refractory
     Dosage: UNK (CYCLE 1)
     Route: 041
  4. RITUXAN [Concomitant]
     Active Substance: RITUXIMAB
     Dosage: UNK (CYCLE 2)
     Route: 041
  5. POLATUZUMAB VEDOTIN [Concomitant]
     Active Substance: POLATUZUMAB VEDOTIN
     Indication: Diffuse large B-cell lymphoma refractory
     Dosage: UNK (CYCLE 1)
     Route: 041
  6. POLATUZUMAB VEDOTIN [Concomitant]
     Active Substance: POLATUZUMAB VEDOTIN
     Dosage: UNK (CYCLE 2)
     Route: 041

REACTIONS (1)
  - Duodenal ulcer [Unknown]
